FAERS Safety Report 20785536 (Version 1)
Quarter: 2022Q2

REPORT INFORMATION
  Report Type: Spontaneous
  Country: US (occurrence: None)
  Receive Date: 20220504
  Receipt Date: 20220504
  Transmission Date: 20220721
  Serious: No
  Sender: FDA-Public Use
  Company Number: US-ROCHE-2869705

PATIENT
  Age: 49 Year
  Sex: Female
  Weight: 65.830 kg

DRUGS (2)
  1. OCREVUS [Suspect]
     Active Substance: OCRELIZUMAB
     Indication: Relapsing-remitting multiple sclerosis
     Dosage: YES
     Route: 042
  2. LISINOPRIL [Concomitant]
     Active Substance: LISINOPRIL
     Indication: Alport^s syndrome
     Route: 048

REACTIONS (1)
  - Antibody test negative [Not Recovered/Not Resolved]

NARRATIVE: CASE EVENT DATE: 20210709
